FAERS Safety Report 13499815 (Version 1)
Quarter: 2017Q2

REPORT INFORMATION
  Report Type: Spontaneous
  Country: US (occurrence: US)
  Receive Date: 20170501
  Receipt Date: 20170501
  Transmission Date: 20170830
  Serious: Yes (Hospitalization)
  Sender: FDA-Public Use
  Company Number: US-SA-2017SA075638

PATIENT
  Sex: Female

DRUGS (11)
  1. FLUCONAZOLE. [Concomitant]
     Active Substance: FLUCONAZOLE
  2. WARFARIN [Concomitant]
     Active Substance: WARFARIN
  3. AUBAGIO [Suspect]
     Active Substance: TERIFLUNOMIDE
     Indication: MULTIPLE SCLEROSIS
     Route: 048
  4. AZITHROMYCIN ANHYDROUS. [Concomitant]
     Active Substance: AZITHROMYCIN ANHYDROUS
  5. BACLOFEN. [Concomitant]
     Active Substance: BACLOFEN
  6. SALBUTAMOL SULFATE/IPRATROPIUM BROMIDE [Concomitant]
     Dosage: SOL
  7. PREDNISOLONE. [Concomitant]
     Active Substance: PREDNISOLONE
     Dosage: SOL
  8. METHYLPRED [Concomitant]
     Active Substance: METHYLPREDNISOLONE
  9. CICLOPIROX. [Concomitant]
     Active Substance: CICLOPIROX
  10. LEVOFLOXACIN. [Concomitant]
     Active Substance: LEVOFLOXACIN
  11. PROAIR HFA [Concomitant]
     Active Substance: ALBUTEROL SULFATE

REACTIONS (1)
  - Hospitalisation [Unknown]
